FAERS Safety Report 19397355 (Version 2)
Quarter: 2021Q2

REPORT INFORMATION
  Report Type: Spontaneous
  Country: US (occurrence: US)
  Receive Date: 20210609
  Receipt Date: 20210625
  Transmission Date: 20210717
  Serious: Yes (Other)
  Sender: FDA-Public Use
  Company Number: US-009507513-2106USA001323

PATIENT
  Age: 71 Year
  Sex: Male

DRUGS (1)
  1. TICE BCG [Suspect]
     Active Substance: BACILLUS CALMETTE-GUERIN SUBSTRAIN TICE LIVE ANTIGEN
     Indication: TRANSITIONAL CELL CARCINOMA
     Dosage: UNK
     Route: 043
     Dates: start: 2018

REACTIONS (3)
  - Parapharyngeal space infection [Unknown]
  - Cystitis bacterial [Recovered/Resolved]
  - Disseminated tuberculosis [Unknown]

NARRATIVE: CASE EVENT DATE: 201901
